FAERS Safety Report 7689042-0 (Version None)
Quarter: 2011Q3

REPORT INFORMATION
  Report Type: 
  Country: None (occurrence: None)
  Receive Date: 20110817
  Receipt Date: 20110808
  Transmission Date: 20111222
  Serious: Yes (Death, Other)
  Sender: FDA-Public Use
  Company Number: JP-BRISTOL-MYERS SQUIBB COMPANY-15953292

PATIENT
  Age: 5 Year
  Sex: Male

DRUGS (7)
  1. CYTARABINE [Suspect]
     Indication: BURKITT'S LYMPHOMA
     Dosage: 1DF= 26 G/M2
  2. CYCLOPHOSPHAMIDE [Suspect]
     Indication: BURKITT'S LYMPHOMA
     Dosage: 1DF= 9 G/M2.
  3. TRIMETHOPRIM + SULFAMETHOXAZOLE [Suspect]
     Indication: BURKITT'S LYMPHOMA
  4. VINCRISTINE [Suspect]
     Indication: BURKITT'S LYMPHOMA
     Dosage: 1DF= 3MG/M2.
  5. METHOTREXATE [Suspect]
     Indication: BURKITT'S LYMPHOMA
     Dosage: 1DF=6 G/M2.
  6. EPIRUBICIN [Suspect]
     Indication: BURKITT'S LYMPHOMA
     Dosage: 1DF= 360 MG/M2.
  7. ETOPOSIDE [Suspect]
     Indication: BURKITT'S LYMPHOMA
     Dosage: 1DF= 1.1 G/M2.

REACTIONS (4)
  - PLEURAL EFFUSION [None]
  - TOXIC EPIDERMAL NECROLYSIS [None]
  - PULMONARY VENO-OCCLUSIVE DISEASE [None]
  - RIGHT VENTRICULAR FAILURE [None]
